FAERS Safety Report 9275067 (Version 1)
Quarter: 2013Q2

REPORT INFORMATION
  Report Type: Spontaneous
  Country: US (occurrence: US)
  Receive Date: 20130507
  Receipt Date: 20130507
  Transmission Date: 20140414
  Serious: No
  Sender: FDA-Public Use
  Company Number: US-TEVA-402897USA

PATIENT
  Age: 75 Year
  Sex: Female
  Weight: 49.94 kg

DRUGS (6)
  1. NUVIGIL [Suspect]
     Indication: FATIGUE
     Route: 048
     Dates: start: 201304, end: 201304
  2. TOPROL [Concomitant]
     Indication: BLOOD PRESSURE
  3. CIMETIDINE [Concomitant]
     Indication: GASTRIC PH DECREASED
  4. LORAZEPAM [Concomitant]
     Indication: NERVOUSNESS
  5. CLOPIDOGREL [Concomitant]
     Indication: ANTICOAGULANT THERAPY
  6. HYDROCODONE [Concomitant]
     Indication: CANCER PAIN

REACTIONS (6)
  - Feeling abnormal [Unknown]
  - Dizziness [Unknown]
  - Heart rate increased [Unknown]
  - Nervousness [Unknown]
  - Medication error [Unknown]
  - Off label use [Unknown]
